FAERS Safety Report 12212637 (Version 1)
Quarter: 2016Q1

REPORT INFORMATION
  Report Type: Spontaneous
  Country: US (occurrence: US)
  Receive Date: 20160328
  Receipt Date: 20160328
  Transmission Date: 20160526
  Serious: No
  Sender: FDA-Public Use
  Company Number: US-009507513-1603USA002981

PATIENT
  Age: 22 Year
  Sex: Female
  Weight: 47.62 kg

DRUGS (5)
  1. OMEGA-3 ACIDS [Concomitant]
     Active Substance: OMEGA-3 FATTY ACIDS
  2. POTASSIUM (UNSPECIFIED) [Concomitant]
     Active Substance: POTASSIUM
  3. NEXPLANON [Suspect]
     Active Substance: ETONOGESTREL
     Indication: CONTRACEPTION
     Dosage: UNK
     Route: 059
     Dates: start: 20160218
  4. VITAMIN D [Concomitant]
     Active Substance: CHOLECALCIFEROL
  5. OXYCODONE [Concomitant]
     Active Substance: OXYCODONE

REACTIONS (4)
  - Pain in extremity [Recovered/Resolved]
  - Pain in extremity [Not Recovered/Not Resolved]
  - Erythema [Not Recovered/Not Resolved]
  - Erythema [Recovered/Resolved]

NARRATIVE: CASE EVENT DATE: 2016
